FAERS Safety Report 14544645 (Version 1)
Quarter: 2018Q1

REPORT INFORMATION
  Report Type: Spontaneous
  Country: ES (occurrence: ES)
  Receive Date: 20180217
  Receipt Date: 20180217
  Transmission Date: 20180509
  Serious: Yes (Death, Other)
  Sender: FDA-Public Use
  Company Number: ES-ABBVIE-18P-144-2260461-00

PATIENT
  Age: 61 Year
  Sex: Male

DRUGS (2)
  1. LEUPRORELIN [Suspect]
     Active Substance: LEUPROLIDE ACETATE
     Indication: ANTIANDROGEN THERAPY
     Dosage: UNK
     Route: 065
  2. ENZALUTAMIDE [Suspect]
     Active Substance: ENZALUTAMIDE
     Indication: HORMONE-REFRACTORY PROSTATE CANCER
     Dosage: 160 MG, QD
     Route: 065

REACTIONS (11)
  - Haemangioma [Fatal]
  - General physical health deterioration [Fatal]
  - Malignant neoplasm progression [Fatal]
  - Pulmonary embolism [Fatal]
  - Prostatic specific antigen increased [Fatal]
  - Hepatic steatosis [Fatal]
  - Back pain [Fatal]
  - Thrombocytopenia [Fatal]
  - Gait disturbance [Fatal]
  - Dyspnoea [Fatal]
  - Anaemia [Fatal]

NARRATIVE: CASE EVENT DATE: 201511
